FAERS Safety Report 15191120 (Version 1)
Quarter: 2018Q3

REPORT INFORMATION
  Report Type: Spontaneous
  Country: US (occurrence: US)
  Receive Date: 20180724
  Receipt Date: 20180724
  Transmission Date: 20181010
  Serious: No
  Sender: FDA-Public Use
  Company Number: US-JNJFOC-20180704580

PATIENT
  Age: 68 Year
  Sex: Female
  Weight: 46.27 kg

DRUGS (4)
  1. WOMENS ROGAINE UNSCENTED [Suspect]
     Active Substance: MINOXIDIL
     Route: 061
  2. WOMENS ROGAINE UNSCENTED [Suspect]
     Active Substance: MINOXIDIL
     Indication: ALOPECIA
     Dosage: MORE THAN HALF CAPFUL
     Route: 061
  3. CLOBETASOL [Concomitant]
     Active Substance: CLOBETASOL
     Route: 061
  4. CORTISONE [Concomitant]
     Active Substance: CORTISONE\HYDROCORTISONE
     Route: 061

REACTIONS (7)
  - Contraindicated product administered [Unknown]
  - Product use in unapproved indication [Unknown]
  - Off label use [Unknown]
  - Therapeutic response unexpected [Unknown]
  - Drug administration error [Unknown]
  - Overdose [Unknown]
  - Product formulation issue [Unknown]

NARRATIVE: CASE EVENT DATE: 20180702
